FAERS Safety Report 11196658 (Version 1)
Quarter: 2015Q2

REPORT INFORMATION
  Report Type: Spontaneous
  Country: IL (occurrence: IL)
  Receive Date: 20150617
  Receipt Date: 20150617
  Transmission Date: 20150821
  Serious: Yes (Death, Hospitalization)
  Sender: FDA-Public Use
  Company Number: IL-SA-2015SA084128

PATIENT
  Age: 65 Year
  Sex: Female

DRUGS (4)
  1. FLUOROURACIL. [Concomitant]
     Active Substance: FLUOROURACIL
     Indication: COLON CANCER METASTATIC
     Dates: start: 200910
  2. BEVACIZUMAB [Concomitant]
     Active Substance: BEVACIZUMAB
     Indication: COLON CANCER METASTATIC
     Dates: start: 200910
  3. OXALIPLATIN. [Suspect]
     Active Substance: OXALIPLATIN
     Indication: COLON CANCER METASTATIC
     Route: 065
  4. OXALIPLATIN. [Suspect]
     Active Substance: OXALIPLATIN
     Indication: COLON CANCER METASTATIC
     Route: 065
     Dates: start: 200910

REACTIONS (12)
  - Interstitial lung disease [Fatal]
  - Hypotension [Fatal]
  - Pyrexia [Fatal]
  - Rales [Fatal]
  - Respiratory alkalosis [Fatal]
  - Respiratory failure [Fatal]
  - Dyspnoea [Fatal]
  - Presyncope [Fatal]
  - Computerised tomogram thorax abnormal [Fatal]
  - Lung infiltration [Fatal]
  - Diffuse alveolar damage [Fatal]
  - Oxygen saturation decreased [Fatal]
